FAERS Safety Report 7182616 (Version 5)
Quarter: 2015Q1

REPORT INFORMATION
  Report Type: Report from Study
  Country: JP (occurrence: JP)
  Receive Date: 20091120
  Receipt Date: 20150318
  Transmission Date: 20150721
  Serious: Yes (Hospitalization, Other)
  Sender: FDA-Public Use
  Company Number: JP-NOVOPROD-300606

PATIENT
  Age: 8 Year
  Sex: Male
  Weight: 20 kg

DRUGS (7)
  1. NORDITROPIN [Suspect]
     Active Substance: SOMATROPIN
     Indication: GROWTH HORMONE DEFICIENCY
     Dosage: 0.5-0.9MG/DAY
     Route: 058
     Dates: start: 20070804
  2. NORDITROPIN [Suspect]
     Active Substance: SOMATROPIN
     Dosage: 0.7 MG, QD
     Route: 058
     Dates: start: 20110730
  3. CORTRIL [Concomitant]
     Active Substance: HYDROCORTISONE
     Indication: HYPOPITUITARISM
     Dosage: 14-30 MG, QD
     Route: 048
     Dates: start: 20050825
  4. NORDITROPIN [Suspect]
     Active Substance: SOMATROPIN
     Dosage: 0.8 MG, QD
     Route: 058
     Dates: start: 20130316
  5. DESMOPRESSIN [Concomitant]
     Active Substance: DESMOPRESSIN
     Indication: HYPOPITUITARISM
     Dosage: 10-17.5 ?G, QD
     Route: 045
     Dates: start: 20050818
  6. NORDITROPIN [Suspect]
     Active Substance: SOMATROPIN
     Dosage: 6.3 MG, QW
     Route: 058
     Dates: start: 20131214
  7. THYRADIN [Concomitant]
     Active Substance: LEVOTHYROXINE
     Indication: HYPOPITUITARISM
     Dosage: 65-150 ?G, QD
     Route: 048
     Dates: start: 200711

REACTIONS (1)
  - Craniopharyngioma [Recovering/Resolving]

NARRATIVE: CASE EVENT DATE: 20090606
